FAERS Safety Report 11339111 (Version 1)
Quarter: 2015Q3

REPORT INFORMATION
  Report Type: Spontaneous
  Country: US (occurrence: US)
  Receive Date: 20150803
  Receipt Date: 20150803
  Transmission Date: 20151125
  Serious: No
  Sender: FDA-Public Use
  Company Number: US-ELI_LILLY_AND_COMPANY-US200905001779

PATIENT
  Age: 7 Year
  Sex: Male

DRUGS (3)
  1. STRATTERA [Suspect]
     Active Substance: ATOMOXETINE HYDROCHLORIDE
     Dosage: 28 MG, DAILY (1/D)
     Route: 065
     Dates: start: 2009
  2. STRATTERA [Suspect]
     Active Substance: ATOMOXETINE HYDROCHLORIDE
     Indication: ATTENTION DEFICIT/HYPERACTIVITY DISORDER
     Dosage: 10 MG, DAILY (1/D)
     Route: 065
     Dates: start: 200903
  3. STRATTERA [Suspect]
     Active Substance: ATOMOXETINE HYDROCHLORIDE
     Dosage: 20 MG, DAILY (1/D)
     Route: 065
     Dates: start: 2009, end: 2009

REACTIONS (2)
  - Drug effect decreased [Unknown]
  - Tic [Not Recovered/Not Resolved]

NARRATIVE: CASE EVENT DATE: 200903
